FAERS Safety Report 9431619 (Version 3)
Quarter: 2013Q3

REPORT INFORMATION
  Report Type: Spontaneous
  Country: US (occurrence: US)
  Receive Date: 20130731
  Receipt Date: 20130822
  Transmission Date: 20140515
  Serious: Yes (Hospitalization)
  Sender: FDA-Public Use
  Company Number: US-BIOGENIDEC-2013BI068849

PATIENT
  Age: 61 Year
  Sex: Female
  Weight: 117 kg

DRUGS (14)
  1. AVONEX [Suspect]
     Indication: MULTIPLE SCLEROSIS
     Route: 030
     Dates: start: 200711
  2. AVONEX [Suspect]
     Indication: MULTIPLE SCLEROSIS
     Route: 030
     Dates: start: 20080326, end: 20080605
  3. AVONEX [Suspect]
     Indication: MULTIPLE SCLEROSIS
     Route: 030
     Dates: start: 20080817
  4. AVONEX [Suspect]
     Indication: MULTIPLE SCLEROSIS
     Route: 030
     Dates: start: 20111103
  5. AMLODIPINE BESYLATE [Concomitant]
  6. FOSINOPRIL SODIUM [Concomitant]
  7. GLIPIZIDE XL [Concomitant]
  8. HYDROCODONE-ACETAMINOPHEN [Concomitant]
  9. LASIX [Concomitant]
  10. METFORMIN HCL [Concomitant]
  11. METOPROLOL TARTRATE [Concomitant]
  12. POTASSIUM CL [Concomitant]
  13. PRILOSEC [Concomitant]
  14. SIMVASTATIN [Concomitant]

REACTIONS (10)
  - Gait disturbance [Not Recovered/Not Resolved]
  - Multiple sclerosis relapse [Not Recovered/Not Resolved]
  - Guillain-Barre syndrome [Unknown]
  - Peripheral sensory neuropathy [Unknown]
  - Myelitis transverse [Unknown]
  - Influenza [Unknown]
  - Diabetes mellitus [Not Recovered/Not Resolved]
  - Vitamin D deficiency [Unknown]
  - Blood glucose increased [Unknown]
  - Muscular weakness [Not Recovered/Not Resolved]
